FAERS Safety Report 25026435 (Version 1)
Quarter: 2025Q1

REPORT INFORMATION
  Report Type: Report from Study
  Country: CA (occurrence: CA)
  Receive Date: 20250301
  Receipt Date: 20250301
  Transmission Date: 20250409
  Serious: Yes (Other)
  Sender: ACCORD
  Company Number: CA-Accord-471837

PATIENT
  Age: 3 Decade
  Sex: Male

DRUGS (13)
  1. CLOZAPINE [Suspect]
     Active Substance: CLOZAPINE
     Indication: Schizoaffective disorder
  2. ATORVASTATIN [Concomitant]
     Active Substance: ATORVASTATIN
  3. EMPAGLIFLOZIN [Concomitant]
     Active Substance: EMPAGLIFLOZIN
  4. FLUPENTIXOL DECANOATE [Concomitant]
     Active Substance: FLUPENTIXOL DECANOATE
  5. INSULIN NOS [Concomitant]
     Active Substance: INSULIN NOS
  6. LEVOTHYROXINE [Concomitant]
     Active Substance: LEVOTHYROXINE
  7. LITHIUM [Concomitant]
     Active Substance: LITHIUM
  8. MELATONIN [Concomitant]
     Active Substance: MELATONIN
  9. METFORMIN [Concomitant]
     Active Substance: METFORMIN HYDROCHLORIDE
  10. OLANZAPINE [Concomitant]
     Active Substance: OLANZAPINE
  11. PALIPERIDONE PALMITATE [Concomitant]
     Active Substance: PALIPERIDONE PALMITATE
  12. QUETIAPINE [Concomitant]
     Active Substance: QUETIAPINE
  13. VALPROATE [Concomitant]
     Active Substance: VALPROIC ACID

REACTIONS (6)
  - Troponin increased [Unknown]
  - C-reactive protein increased [Unknown]
  - Salivary hypersecretion [Unknown]
  - Tachycardia [Unknown]
  - Constipation [Unknown]
  - Orthostatic hypotension [Unknown]
